FAERS Safety Report 7197475-4 (Version None)
Quarter: 2010Q4

REPORT INFORMATION
  Report Type: 
  Country: None (occurrence: None)
  Receive Date: 20101227
  Receipt Date: 20101027
  Transmission Date: 20110411
  Serious: Yes (Death)
  Sender: FDA-Public Use
  Company Number: ES-PFIZER INC-2010137245

PATIENT
  Age: 57 Year
  Sex: Male

DRUGS (12)
  1. SUNITINIB MALATE [Suspect]
     Indication: RENAL CELL CARCINOMA
     Dosage: 50 MG, 1X/DAY
     Route: 048
     Dates: start: 20091223, end: 20100112
  2. SUNITINIB MALATE [Suspect]
     Dosage: 25 MG, 1X/DAY
     Route: 048
     Dates: start: 20100610, end: 20100624
  3. SUNITINIB MALATE [Suspect]
     Dosage: 50 MG, 1X/DAY
     Route: 048
     Dates: start: 20100624
  4. TEMSIROLIMUS [Suspect]
     Indication: RENAL CANCER
     Dosage: 25 MG, WEEKLY
     Dates: start: 20100204, end: 20100225
  5. AMLODIPINE [Concomitant]
     Dosage: 10 MG, 2X/DAY
     Route: 048
     Dates: start: 20100122, end: 20100716
  6. LOSARTAN [Concomitant]
     Dosage: 100 MG, 2X/DAY
     Route: 048
     Dates: start: 20100122, end: 20100716
  7. DOXAZOSIN [Concomitant]
     Dosage: 4 MG, 1X/DAY
     Route: 048
     Dates: start: 20100122, end: 20100716
  8. CARVEDILOL [Concomitant]
     Dosage: 12.5 MG, 2X/DAY
     Route: 048
     Dates: start: 20100122, end: 20100716
  9. OMEPRAZOLE [Concomitant]
     Indication: PROPHYLAXIS
     Dosage: 40 MG, 1X/DAY
     Route: 048
     Dates: start: 20100112, end: 20100716
  10. ALLOPURINOL [Concomitant]
     Dosage: 100 MG, 1X/DAY
     Route: 048
     Dates: start: 20100112, end: 20100716
  11. DARBEPOETIN ALFA [Concomitant]
     Dosage: 40 UG, WEEKLY
     Route: 058
     Dates: start: 20100112, end: 20100716
  12. CALCIUM CARBONATE [Concomitant]
     Dosage: 500 MG, 2X/DAY
     Route: 048
     Dates: start: 20100112, end: 20100716

REACTIONS (1)
  - CARDIAC ARREST [None]
